FAERS Safety Report 21993412 (Version 3)
Quarter: 2023Q2

REPORT INFORMATION
  Report Type: Report from Study
  Country: JP (occurrence: JP)
  Receive Date: 20230215
  Receipt Date: 20230412
  Transmission Date: 20230722
  Serious: Yes (Hospitalization)
  Sender: FDA-Public Use
  Company Number: JP-UCBJ-CD202301713UCBPHAPROD

PATIENT
  Age: 5 Year
  Sex: Male
  Weight: 15 kg

DRUGS (6)
  1. FENFLURAMINE HYDROCHLORIDE [Suspect]
     Active Substance: FENFLURAMINE HYDROCHLORIDE
     Indication: Severe myoclonic epilepsy of infancy
     Dosage: 0.4 MILLIGRAM, ONCE DAILY (QD)
     Route: 048
     Dates: start: 20230124, end: 20230221
  2. FENFLURAMINE HYDROCHLORIDE [Suspect]
     Active Substance: FENFLURAMINE HYDROCHLORIDE
     Dosage: 0.2 MILLIGRAM/KILOGRAM, ONCE DAILY (QD)
     Route: 048
     Dates: start: 20230124, end: 20230227
  3. VALPROATE SODIUM [Concomitant]
     Active Substance: VALPROATE SODIUM
     Indication: Epilepsy
     Dosage: 250 MILLIGRAM
     Route: 048
  4. MYSTAN [Concomitant]
     Active Substance: CLOBAZAM
     Indication: Epilepsy
     Dosage: 4 MILLIGRAM
     Route: 048
  5. DIACOMIT [Concomitant]
     Active Substance: STIRIPENTOL
     Indication: Epilepsy
     Dosage: 500 MILLIGRAM
     Route: 048
  6. LEVOCARNITINE HYDROCHLORIDE [Concomitant]
     Active Substance: LEVOCARNITINE HYDROCHLORIDE
     Indication: Prophylaxis
     Dosage: 3 MILLILITER, ONCE DAILY (QD)
     Route: 048

REACTIONS (2)
  - Diarrhoea [Recovered/Resolved]
  - Hyperammonaemia [Recovered/Resolved]

NARRATIVE: CASE EVENT DATE: 20230214
